FAERS Safety Report 7409769-5 (Version None)
Quarter: 2011Q2

REPORT INFORMATION
  Report Type: 
  Country: None (occurrence: None)
  Receive Date: 20110412
  Receipt Date: 20090205
  Transmission Date: 20111010
  Serious: Yes (Death, Hospitalization, Other)
  Sender: FDA-Public Use
  Company Number: US-BAYER-200912300NA

PATIENT
  Age: 61 Year
  Sex: Male
  Weight: 84 kg

DRUGS (31)
  1. TRASYLOL [Suspect]
     Indication: AORTIC VALVE REPLACEMENT
     Dosage: 50 ML/HOUR
     Route: 042
     Dates: start: 20051121, end: 20051121
  2. ZESTRIL [Concomitant]
     Dosage: 20 MG, QD, LONG TERM USE
     Route: 048
     Dates: end: 20051121
  3. NITROGLYCERIN [Concomitant]
     Dosage: UNK
     Route: 041
     Dates: start: 20051121
  4. VANCOMYCIN [Concomitant]
     Indication: DRESSLER'S SYNDROME
     Dosage: 1 G, UNK
     Route: 042
     Dates: start: 20051121, end: 20051121
  5. ANCEF [Concomitant]
     Indication: STAPHYLOCOCCAL BACTERAEMIA
     Dosage: UNK
     Dates: start: 20051220
  6. VANCOMYCIN [Concomitant]
     Dosage: UNK
     Dates: start: 20051216
  7. DEMADEX [Concomitant]
     Dosage: UNK
     Route: 042
     Dates: start: 20051107, end: 20051107
  8. ZANTAC [Concomitant]
     Route: 048
  9. ETOMIDATE [Concomitant]
     Dosage: 10 MG, UNK
     Route: 042
     Dates: start: 20051121, end: 20051121
  10. NIMBEX [Concomitant]
     Dosage: 50 MG, UNK
     Route: 042
     Dates: start: 20051121, end: 20051121
  11. BICARBONAT [Concomitant]
     Dosage: 40 MEQ, UNK
     Route: 042
     Dates: start: 20051121, end: 20051121
  12. RED BLOOD CELLS [Concomitant]
     Dosage: 1 U, UNK
     Route: 042
     Dates: start: 20051121
  13. ALBUMIN (HUMAN) [Concomitant]
     Dosage: 50 ML, UNK
     Route: 042
     Dates: start: 20051121
  14. PROTAMINE SULFATE [Concomitant]
     Dosage: 250 MG, UNK
     Route: 042
     Dates: start: 20051121, end: 20051121
  15. EPINEPHRINE [Concomitant]
     Dosage: UNK
     Route: 041
     Dates: start: 20051121
  16. TRASYLOL [Suspect]
     Indication: CORONARY ARTERY BYPASS
     Dosage: 200 ML, LOADING DOSE
     Route: 042
     Dates: start: 20051121, end: 20051121
  17. LASIX [Concomitant]
     Dosage: 20 MG, TID, LONG TERM USE
     Route: 048
  18. DIGOXIN [Concomitant]
     Indication: ATRIAL FIBRILLATION
     Dosage: 25 MG, QD, LONG TERM USE
     Route: 048
     Dates: end: 20051121
  19. ALTACE [Concomitant]
     Dosage: 5 MG, QD, LONG TERM USE
     Route: 048
  20. MANNITOL [Concomitant]
     Dosage: 100 G, UNK
     Route: 042
     Dates: start: 20051121, end: 20051121
  21. FORANE [Concomitant]
     Dosage: INHALED
     Dates: start: 20051121, end: 20051121
  22. FENTANYL [Concomitant]
     Dosage: 1250 MCG
     Route: 042
     Dates: start: 20051121, end: 20051121
  23. CARDIZEM [Concomitant]
     Indication: ATRIAL FIBRILLATION
     Dosage: UNK
     Route: 041
     Dates: start: 20051123
  24. COLACE [Concomitant]
     Route: 048
  25. HEPARIN [Concomitant]
     Dosage: UNK
     Route: 042
     Dates: start: 20051121, end: 20051121
  26. COREG [Concomitant]
     Dosage: 12.5 MG, BID, LONG TERM USE
     Route: 048
     Dates: end: 20051121
  27. DIGOXIN [Concomitant]
     Dosage: UNK
     Dates: start: 20051123
  28. ACETYLSALICYLIC ACID SRT [Concomitant]
     Dosage: 325 MG, QD
     Route: 048
  29. MIDAZOLAM [Concomitant]
     Dosage: 10 MG, UNK
     Route: 042
     Dates: start: 20051121, end: 20051121
  30. DOBUTAMINE HCL [Concomitant]
     Indication: VENTRICULAR TACHYCARDIA
     Dosage: UNK
     Route: 041
     Dates: start: 20050115, end: 20060121
  31. AMIODARONE HCL [Concomitant]
     Indication: ATRIAL FIBRILLATION
     Dosage: UNK
     Dates: start: 20051123

REACTIONS (13)
  - RENAL FAILURE [None]
  - RENAL INJURY [None]
  - DYSPNOEA [None]
  - ABDOMINAL PAIN [None]
  - THROMBOCYTOPENIA [None]
  - INJURY [None]
  - STAPHYLOCOCCAL BACTERAEMIA [None]
  - PAIN [None]
  - PYREXIA [None]
  - HYPERPYREXIA [None]
  - RENAL FAILURE ACUTE [None]
  - ENDOCARDITIS [None]
  - UNEVALUABLE EVENT [None]
